FAERS Safety Report 6835474-X (Version None)
Quarter: 2010Q3

REPORT INFORMATION
  Report Type: 
  Country: None (occurrence: None)
  Receive Date: 20100713
  Receipt Date: 20100629
  Transmission Date: 20110219
  Serious: Yes (Other)
  Sender: FDA-Public Use
  Company Number: PHHY2010DE43170

PATIENT
  Age: 46 Year
  Sex: Male

DRUGS (3)
  1. ZOLEDRONATE [Suspect]
     Indication: MULTIPLE MYELOMA
  2. CHEMOTHERAPEUTICS NOS [Concomitant]
  3. STEROIDS NOS [Concomitant]

REACTIONS (5)
  - BONE DISORDER [None]
  - BONE LESION EXCISION [None]
  - IMPAIRED HEALING [None]
  - OSTEONECROSIS OF JAW [None]
  - STEM CELL TRANSPLANT [None]
